FAERS Safety Report 9866298 (Version 1)
Quarter: 2014Q1

REPORT INFORMATION
  Report Type: Spontaneous
  Country: US (occurrence: US)
  Receive Date: 20140203
  Receipt Date: 20140203
  Transmission Date: 20141002
  Serious: No
  Sender: FDA-Public Use
  Company Number: US-ALLERGAN-1319010US

PATIENT
  Age: 80 Year
  Sex: Female

DRUGS (13)
  1. RESTASIS [Suspect]
     Indication: DRY EYE
     Dosage: 2 GTT, BID
     Route: 047
     Dates: start: 20131203
  2. RESTASIS [Suspect]
     Indication: OCULAR HYPERAEMIA
  3. RESTASIS [Suspect]
     Indication: EYE IRRITATION
  4. RESTASIS [Suspect]
     Indication: EYELID DISORDER
  5. REFRESH OPTIVE ADVANCED [Suspect]
     Indication: DRY EYE
     Dosage: UNK
     Route: 047
  6. REFRESH OPTIVE ADVANCED [Suspect]
     Indication: OCULAR HYPERAEMIA
  7. REFRESH OPTIVE ADVANCED [Suspect]
     Indication: EYE IRRITATION
  8. REFRESH OPTIVE ADVANCED [Suspect]
     Indication: EYELID DISORDER
  9. REFRESH PM                         /01210201/ [Concomitant]
     Indication: PRODUCT USED FOR UNKNOWN INDICATION
     Dosage: UNK UNK, QHS
  10. REFRESH PM                         /01210201/ [Concomitant]
     Indication: DRY EYE
  11. THYROID MEDICATION [Concomitant]
     Indication: THYROID OPERATION
     Dosage: UNK
  12. BLOOD PRESSURE MEDICATION [Concomitant]
     Indication: BLOOD PRESSURE
     Dosage: UNK
  13. CHOLESTEROL MEDICATION [Concomitant]
     Indication: BLOOD CHOLESTEROL
     Dosage: UNK

REACTIONS (3)
  - Off label use [Unknown]
  - Ocular hyperaemia [Recovering/Resolving]
  - Eye irritation [Recovering/Resolving]
